FAERS Safety Report 16018085 (Version 1)
Quarter: 2019Q1

REPORT INFORMATION
  Report Type: Spontaneous
  Country: US (occurrence: US)
  Receive Date: 20190201
  Receipt Date: 20190201
  Transmission Date: 20190418
  Serious: No
  Sender: FDA-Public Use
  Company Number: None

PATIENT
  Age: 71 Year
  Sex: Male

DRUGS (1)
  1. MIDAZOLAM [Suspect]
     Active Substance: MIDAZOLAM HYDROCHLORIDE
     Indication: SURGERY
     Dates: start: 20181218, end: 20181218

REACTIONS (2)
  - Confusional state [None]
  - Postoperative ileus [None]

NARRATIVE: CASE EVENT DATE: 20181218
